FAERS Safety Report 6247635-1 (Version None)
Quarter: 2009Q2

REPORT INFORMATION
  Report Type: 
  Country: None (occurrence: None)
  Receive Date: 20090626
  Receipt Date: 20090616
  Transmission Date: 20091009
  Serious: Yes (Hospitalization)
  Sender: FDA-Public Use
  Company Number: BE-ABBOTT-09P-013-0580309-01

PATIENT
  Sex: Female
  Weight: 80 kg

DRUGS (11)
  1. HUMIRA [Suspect]
     Indication: CROHN'S DISEASE
     Route: 058
     Dates: start: 20080327, end: 20090302
  2. EMCONCOR [Concomitant]
     Indication: HYPERTENSION
     Dates: start: 19930101
  3. XANAX [Concomitant]
     Indication: INSOMNIA
  4. EFFEXOR [Concomitant]
     Indication: INSOMNIA
     Dates: start: 20020401
  5. ZANTAC [Concomitant]
     Indication: ABDOMINAL DISCOMFORT
  6. ASAFLOW [Concomitant]
     Indication: PAIN
  7. DUOVENT [Concomitant]
     Indication: ASTHMA
  8. SERETIDE DISCUS [Concomitant]
     Indication: ASTHMA
     Dates: start: 20070601
  9. SINGULAIR [Concomitant]
     Indication: ASTHMA
     Dates: start: 20081101
  10. XANTHIUM [Concomitant]
     Indication: ASTHMA
     Dates: start: 20081101
  11. PERINDOPRIL [Concomitant]
     Indication: HYPERTENSION
     Dates: start: 20081101

REACTIONS (5)
  - AORTIC ANEURYSM [None]
  - CONDITION AGGRAVATED [None]
  - CROHN'S DISEASE [None]
  - ELECTROCARDIOGRAM ST SEGMENT DEPRESSION [None]
  - VENTRICULAR DYSFUNCTION [None]
